FAERS Safety Report 4626608-6 (Version None)
Quarter: 2005Q1

REPORT INFORMATION
  Report Type: 
  Country: None (occurrence: None)
  Receive Date: 20050330
  Receipt Date: 20050315
  Transmission Date: 20050727
  Serious: Yes (Hospitalization)
  Sender: FDA-Public Use
  Company Number: US014888

PATIENT
  Age: 39 Year
  Sex: Female
  Weight: 81.1939 kg

DRUGS (36)
  1. GABITRIL [Suspect]
     Indication: ANXIETY
     Dosage: 4 MG QD ORAL
     Route: 048
     Dates: start: 20040630, end: 20040706
  2. GABITRIL [Suspect]
     Indication: PANIC ATTACK
     Dosage: 4 MG QD ORAL
     Route: 048
     Dates: start: 20040630, end: 20040706
  3. GABITRIL [Suspect]
     Indication: ANXIETY
     Dosage: 8 MG QD ORAL
     Route: 048
     Dates: start: 20040707, end: 20040713
  4. GABITRIL [Suspect]
     Indication: PANIC ATTACK
     Dosage: 8 MG QD ORAL
     Route: 048
     Dates: start: 20040707, end: 20040713
  5. GABITRIL [Suspect]
     Indication: ANXIETY
     Dosage: 12 MG QD ORAL
     Route: 048
     Dates: start: 20040714, end: 20040720
  6. GABITRIL [Suspect]
     Indication: PANIC ATTACK
     Dosage: 12 MG QD ORAL
     Route: 048
     Dates: start: 20040714, end: 20040720
  7. GABITRIL [Suspect]
     Indication: ANXIETY
     Dosage: 16 MG QD ORAL
     Route: 048
     Dates: start: 20040721, end: 20040727
  8. GABITRIL [Suspect]
     Indication: PANIC ATTACK
     Dosage: 16 MG QD ORAL
     Route: 048
     Dates: start: 20040721, end: 20040727
  9. GABITRIL [Suspect]
     Indication: ANXIETY
     Dosage: 20 MG QD ORAL
     Route: 048
     Dates: start: 20040728, end: 20040803
  10. GABITRIL [Suspect]
     Indication: PANIC ATTACK
     Dosage: 20 MG QD ORAL
     Route: 048
     Dates: start: 20040728, end: 20040803
  11. GABITRIL [Suspect]
     Indication: ANXIETY
     Dosage: 24 MG QD ORAL
     Route: 048
     Dates: start: 20040804, end: 20040810
  12. GABITRIL [Suspect]
     Indication: PANIC ATTACK
     Dosage: 24 MG QD ORAL
     Route: 048
     Dates: start: 20040804, end: 20040810
  13. GABITRIL [Suspect]
     Indication: ANXIETY
     Dosage: 28 MG QD ORAL
     Route: 048
     Dates: start: 20040811, end: 20040817
  14. GABITRIL [Suspect]
     Indication: PANIC ATTACK
     Dosage: 28 MG QD ORAL
     Route: 048
     Dates: start: 20040811, end: 20040817
  15. GABITRIL [Suspect]
     Indication: ANXIETY
     Dosage: 32 MG QD ORAL
     Route: 048
     Dates: start: 20040818, end: 20041028
  16. GABITRIL [Suspect]
     Indication: PANIC ATTACK
     Dosage: 32 MG QD ORAL
     Route: 048
     Dates: start: 20040818, end: 20041028
  17. GABITRIL [Suspect]
     Indication: ANXIETY
     Dosage: 16 MG QD ORAL
     Route: 048
  18. GABITRIL [Suspect]
     Indication: PANIC ATTACK
     Dosage: 16 MG QD ORAL
     Route: 048
  19. GABITRIL [Suspect]
     Indication: ANXIETY
     Dosage: 8 MG QD ORAL
     Route: 048
     Dates: start: 20050201, end: 20050228
  20. GABITRIL [Suspect]
     Indication: PANIC ATTACK
     Dosage: 8 MG QD ORAL
     Route: 048
     Dates: start: 20050201, end: 20050228
  21. ZYPREXA [Concomitant]
  22. LAMICTAL [Concomitant]
  23. QUININE SULFATE [Concomitant]
  24. AMBIEN [Concomitant]
  25. LEVOXYL [Concomitant]
  26. TOPROL-XL [Concomitant]
  27. GEODON [Concomitant]
  28. PAXIL [Concomitant]
  29. TOPAMAX [Concomitant]
  30. ADVAIR DISKUS 100/50 [Concomitant]
  31. LOW-OGESTREL [Concomitant]
  32. DURAGESIC-100 [Concomitant]
  33. ALLEGRA [Concomitant]
  34. ALBUTEROL [Concomitant]
  35. AMERGE [Concomitant]
  36. ATIVAN [Concomitant]

REACTIONS (7)
  - BLOOD POTASSIUM DECREASED [None]
  - CONVULSION [None]
  - DISORIENTATION [None]
  - FALL [None]
  - INCONTINENCE [None]
  - PULMONARY THROMBOSIS [None]
  - THROMBOSIS [None]
